FAERS Safety Report 5424091-4 (Version None)
Quarter: 2007Q3

REPORT INFORMATION
  Report Type: 
  Country: None (occurrence: None)
  Receive Date: 20070727
  Receipt Date: 20060104
  Transmission Date: 20080115
  Serious: Yes (Hospitalization)
  Sender: FDA-Public Use
  Company Number: THYM-10800

PATIENT
  Age: 59 Year
  Sex: Male
  Weight: 152.4086 kg

DRUGS (10)
  1. THYMOGLOBULIN [Suspect]
     Indication: RENAL TRANSPLANT
     Dosage: 190 MG QD IV
     Route: 042
     Dates: start: 20050420, end: 20050424
  2. CELLCEPT [Concomitant]
  3. LOPRESSOR [Concomitant]
  4. NORVASC [Concomitant]
  5. REGULAR INSULIN [Concomitant]
  6. HUMULIN 70/30 [Concomitant]
  7. PROGRAF [Concomitant]
  8. SEPTRA DS [Concomitant]
  9. SODIUM BICARBONATE [Concomitant]
  10. PROTONIX [Concomitant]

REACTIONS (5)
  - ATRIAL FIBRILLATION [None]
  - ATRIAL FLUTTER [None]
  - ENTEROBACTER INFECTION [None]
  - MYOCARDIAL INFARCTION [None]
  - URINARY TRACT INFECTION [None]
